FAERS Safety Report 9055218 (Version 1)
Quarter: 2013Q1

REPORT INFORMATION
  Report Type: Spontaneous
  Country: US (occurrence: US)
  Receive Date: 20130206
  Receipt Date: 20130206
  Transmission Date: 20140127
  Serious: No
  Sender: FDA-Public Use
  Company Number: US-B.I. PHARMACEUTICALS,INC./RIDGEFIELD-2013-BI-03274BP

PATIENT
  Sex: 0

DRUGS (2)
  1. SPIRIVA [Suspect]
     Indication: CHRONIC OBSTRUCTIVE PULMONARY DISEASE
     Dosage: 36 MCG
     Route: 048
  2. SPIRIVA [Suspect]
     Route: 048
     Dates: start: 20130203, end: 20130203

REACTIONS (1)
  - Incorrect route of drug administration [Recovered/Resolved]
